FAERS Safety Report 6171530-X (Version None)
Quarter: 2009Q2

REPORT INFORMATION
  Report Type: 
  Country: None (occurrence: None)
  Receive Date: 20090429
  Receipt Date: 20090417
  Transmission Date: 20091009
  Serious: Yes (Hospitalization)
  Sender: FDA-Public Use
  Company Number: US-PFIZER INC-2008002940

PATIENT
  Sex: Male
  Weight: 104 kg

DRUGS (3)
  1. SUNITINIB MALATE [Suspect]
     Indication: RENAL CELL CARCINOMA
     Dosage: DAILY, INTERVAL: 4WKS ON, 2 WKS OFF
     Route: 048
     Dates: start: 20040610
  2. IBUPROFEN [Concomitant]
     Route: 048
     Dates: start: 20051121, end: 20051122
  3. BENICAR [Concomitant]
     Route: 048
     Dates: start: 20051027, end: 20051124

REACTIONS (1)
  - PERIRECTAL ABSCESS [None]
